FAERS Safety Report 15894247 (Version 3)
Quarter: 2019Q1

REPORT INFORMATION
  Report Type: Spontaneous
  Country: JP (occurrence: JP)
  Receive Date: 20190131
  Receipt Date: 20190326
  Transmission Date: 20190417
  Serious: Yes (Hospitalization)
  Sender: FDA-Public Use
  Company Number: JP-TEVA-2018-JP-987359

PATIENT
  Age: 64 Year
  Sex: Male
  Weight: 50 kg

DRUGS (14)
  1. NEUPRO [Suspect]
     Active Substance: ROTIGOTINE
     Dosage: 18 MILLIGRAM DAILY;
     Route: 062
  2. NEUPRO [Suspect]
     Active Substance: ROTIGOTINE
     Dosage: 22.5 MILLIGRAM DAILY;
     Route: 062
  3. RINDERON VG [Concomitant]
     Active Substance: BETAMETHASONE VALERATE\GENTAMICIN SULFATE
  4. LOXOPROFEN SODIUM [Concomitant]
     Active Substance: LOXOPROFEN SODIUM
  5. REQUIP [Concomitant]
     Active Substance: ROPINIROLE HYDROCHLORIDE
     Dosage: 6 MILLIGRAM DAILY;
     Route: 065
     Dates: start: 20180507, end: 20180521
  6. DOMPERIDON [Concomitant]
     Active Substance: DOMPERIDONE
     Dosage: 30 MILLIGRAM DAILY;
     Route: 065
     Dates: start: 20180507
  7. MENESIT [Concomitant]
     Active Substance: CARBIDOPA\LEVODOPA
     Dosage: 150 MILLIGRAM DAILY;
     Route: 065
     Dates: start: 20180416
  8. METLIGINE [Concomitant]
     Active Substance: MIDODRINE HYDROCHLORIDE
     Dates: start: 20180507
  9. MOSAPRIDE CITRATE [Concomitant]
     Active Substance: MOSAPRIDE CITRATE
  10. LOXONIN [Concomitant]
     Active Substance: LOXOPROFEN SODIUM
  11. AZILECT [Suspect]
     Active Substance: RASAGILINE MESYLATE
     Indication: PARKINSON^S DISEASE
     Dosage: 1 MILLIGRAM DAILY;
     Route: 048
     Dates: start: 20180903, end: 20181119
  12. DONEPEZIL HYDROCHLORIDE. [Concomitant]
     Active Substance: DONEPEZIL HYDROCHLORIDE
     Dosage: 3 MILLIGRAM DAILY;
     Dates: start: 20180604
  13. LANDSEN [Concomitant]
     Active Substance: CLONAZEPAM
  14. NEUPRO [Suspect]
     Active Substance: ROTIGOTINE
     Indication: PRODUCT USED FOR UNKNOWN INDICATION
     Dosage: 13.5 MILLIGRAM DAILY;
     Route: 062
     Dates: start: 20180709

REACTIONS (3)
  - Malaise [Unknown]
  - Dermatitis [Recovered/Resolved]
  - Drug-induced liver injury [Recovering/Resolving]

NARRATIVE: CASE EVENT DATE: 20181111
